FAERS Safety Report 10083883 (Version 1)
Quarter: 2014Q2

REPORT INFORMATION
  Report Type: Spontaneous
  Country: ES (occurrence: None)
  Receive Date: 20140415
  Receipt Date: 20140415
  Transmission Date: 20141212
  Serious: Yes (Other)
  Sender: FDA-Public Use
  Company Number: ADR-2014-00596

PATIENT
  Age: 42 Year
  Sex: Female

DRUGS (1)
  1. BACLOFEN INTRATHECAL [Suspect]
     Indication: MUSCLE SPASTICITY

REACTIONS (10)
  - Headache [None]
  - Nausea [None]
  - Vomiting [None]
  - Dizziness [None]
  - Diplopia [None]
  - Vision blurred [None]
  - Pineal neoplasm [None]
  - Road traffic accident [None]
  - Head injury [None]
  - Neck injury [None]
